FAERS Safety Report 7859410-2 (Version None)
Quarter: 2011Q4

REPORT INFORMATION
  Report Type: 
  Country: None (occurrence: None)
  Receive Date: 20111026
  Receipt Date: 20111026
  Transmission Date: 20120403
  Serious: Yes (Hospitalization)
  Sender: FDA-Public Use
  Company Number: None

PATIENT
  Sex: Male
  Weight: 76.7 kg

DRUGS (3)
  1. CISPLATIN [Suspect]
     Dosage: 185 MG
     Dates: end: 20090203
  2. KEFLEX [Concomitant]
  3. ATENOLOL [Concomitant]

REACTIONS (4)
  - OROPHARYNGEAL PAIN [None]
  - RENAL FAILURE [None]
  - VOMITING [None]
  - DEHYDRATION [None]
